FAERS Safety Report 19940968 (Version 2)
Quarter: 2023Q4

REPORT INFORMATION
  Report Type: Spontaneous
  Country: US (occurrence: US)
  Receive Date: 20211012
  Receipt Date: 20231027
  Transmission Date: 20240109
  Serious: No
  Sender: FDA-Public Use
  Company Number: US-AVEO ONCOLOGY-2021-AVEO-US003506

PATIENT

DRUGS (4)
  1. FOTIVDA [Suspect]
     Active Substance: TIVOZANIB HYDROCHLORIDE
     Indication: Renal cell carcinoma
     Dosage: 1.34 MG, DAILY FOR 21 DAYS FOLLOWS 7-DAY BREAK
     Route: 048
     Dates: start: 20210727, end: 20210811
  2. DILAUDID [Concomitant]
     Active Substance: HYDROMORPHONE HYDROCHLORIDE
  3. ELIQUIS [Concomitant]
     Active Substance: APIXABAN
  4. ONDANSETRON [Concomitant]
     Active Substance: ONDANSETRON

REACTIONS (4)
  - Lethargy [Unknown]
  - Weight decreased [Unknown]
  - Fatigue [Unknown]
  - Decreased appetite [Unknown]
